FAERS Safety Report 19300472 (Version 6)
Quarter: 2021Q4

REPORT INFORMATION
  Report Type: Report from Study
  Country: HU (occurrence: HU)
  Receive Date: 20210525
  Receipt Date: 20211119
  Transmission Date: 20220304
  Serious: Yes (Death)
  Sender: FDA-Public Use
  Company Number: NVSC2021HU115788

PATIENT
  Age: 52 Year
  Sex: Male
  Weight: 80 kg

DRUGS (7)
  1. SIPONIMOD [Suspect]
     Active Substance: SIPONIMOD
     Indication: Multiple sclerosis
     Dosage: UNK
     Route: 048
     Dates: start: 20130627, end: 20160330
  2. SIPONIMOD [Suspect]
     Active Substance: SIPONIMOD
     Indication: Multiple sclerosis
     Dosage: 2 MG, BID
     Route: 048
     Dates: start: 20160407
  3. BACLOFEN [Concomitant]
     Active Substance: BACLOFEN
     Indication: Muscle spasticity
     Dosage: 10-10-75 MG
     Route: 065
     Dates: start: 20170205
  4. LEVETIRACETAM [Concomitant]
     Active Substance: LEVETIRACETAM
     Indication: Epilepsy
     Dosage: 3X1000 MG
     Route: 065
     Dates: start: 20160615
  5. VITAMIN D3 [Concomitant]
     Active Substance: CHOLECALCIFEROL
     Indication: Multiple sclerosis relapse prophylaxis
     Dosage: 3000 UD/DAY
     Route: 065
     Dates: start: 2009
  6. LAMICTAL [Concomitant]
     Active Substance: LAMOTRIGINE
     Indication: Epilepsy
     Dosage: 2X100 MG
     Route: 065
     Dates: start: 20171005
  7. TANYDON [Concomitant]
     Indication: Hypertension
     Dosage: 1X80 MG
     Route: 065
     Dates: start: 20210310

REACTIONS (3)
  - Sepsis [Fatal]
  - Pneumonia bacterial [Fatal]
  - Urinary bladder haemorrhage [Fatal]

NARRATIVE: CASE EVENT DATE: 20210428
